FAERS Safety Report 9461380 (Version 1)
Quarter: 2013Q3

REPORT INFORMATION
  Report Type: Report from Study
  Country: US (occurrence: US)
  Receive Date: 20130816
  Receipt Date: 20130816
  Transmission Date: 20140515
  Serious: Yes (Hospitalization, Other)
  Sender: FDA-Public Use
  Company Number: US-ABBOTT-13P-163-1081616-00

PATIENT
  Age: 62 Year
  Sex: Female

DRUGS (15)
  1. HUMIRA [Suspect]
     Indication: CROHN^S DISEASE
     Dates: start: 20130204, end: 20130218
  2. 6-MP [Concomitant]
     Indication: PRODUCT USED FOR UNKNOWN INDICATION
  3. ATORVASTATIN [Concomitant]
     Indication: BLOOD CHOLESTEROL
  4. LANTUS [Concomitant]
     Indication: PRODUCT USED FOR UNKNOWN INDICATION
     Dosage: IF 3 BLOOD SUGAR READINGS ABOVE 250
  5. LISINOPRIL [Concomitant]
     Indication: BLOOD PRESSURE
  6. NOVOLOG [Concomitant]
     Indication: PRODUCT USED FOR UNKNOWN INDICATION
     Dosage: QAM DEPENDS ON MY BLOOD SUGAR
  7. PROTONIX [Concomitant]
     Indication: PRODUCT USED FOR UNKNOWN INDICATION
  8. TRAZODONE [Concomitant]
     Indication: DEPRESSION
  9. COREG [Concomitant]
     Indication: BLOOD PRESSURE
  10. EFFEXOR [Concomitant]
     Indication: DEPRESSION
  11. MORPHINE [Concomitant]
     Indication: PAIN
  12. PERCOCET [Concomitant]
     Indication: PAIN
  13. PREDNISONE [Concomitant]
     Indication: PRODUCT USED FOR UNKNOWN INDICATION
  14. PREDNISONE [Concomitant]
     Dosage: POST COLOSTOMY SURGERY
  15. PREDNISONE [Concomitant]
     Indication: PRODUCT USED FOR UNKNOWN INDICATION
     Route: 048

REACTIONS (10)
  - Gastrointestinal stoma complication [Recovered/Resolved]
  - Gastrointestinal pain [Recovered/Resolved]
  - Colostomy [Not Recovered/Not Resolved]
  - Escherichia infection [Not Recovered/Not Resolved]
  - Clostridium difficile infection [Recovered/Resolved]
  - Rheumatoid arthritis [Unknown]
  - Dehydration [Recovered/Resolved]
  - Malnutrition [Recovered/Resolved]
  - Renal failure [Recovered/Resolved]
  - White blood cell count increased [Recovered/Resolved]
